FAERS Safety Report 12075584 (Version 2)
Quarter: 2016Q1

REPORT INFORMATION
  Report Type: Spontaneous
  Country: US (occurrence: US)
  Receive Date: 20160213
  Receipt Date: 20160325
  Transmission Date: 20160526
  Serious: No
  Sender: FDA-Public Use
  Company Number: US-009507513-1602USA000574

PATIENT
  Sex: Female

DRUGS (3)
  1. NUVARING [Suspect]
     Active Substance: ETHINYL ESTRADIOL\ETONOGESTREL
     Indication: CONTRACEPTION
     Dosage: NUVARING IN FOR THREE WEEKS AND THEN RING FREE WEEK
     Route: 067
  2. NUVARING [Suspect]
     Active Substance: ETHINYL ESTRADIOL\ETONOGESTREL
     Dosage: NUVARING IN FOR 29 DAYS
  3. NUVARING [Suspect]
     Active Substance: ETHINYL ESTRADIOL\ETONOGESTREL
     Dosage: NUVARING IN FOR 28 DAYS
     Route: 067

REACTIONS (3)
  - Menstruation delayed [Unknown]
  - Incorrect drug administration duration [Unknown]
  - Withdrawal bleed [Unknown]
